FAERS Safety Report 14679855 (Version 1)
Quarter: 2018Q1

REPORT INFORMATION
  Report Type: Spontaneous
  Country: US (occurrence: US)
  Receive Date: 20180325
  Receipt Date: 20180325
  Transmission Date: 20180509
  Serious: Yes (Death, Hospitalization, Other)
  Sender: FDA-Public Use
  Company Number: None

PATIENT
  Age: 78 Year
  Sex: Male
  Weight: 67.5 kg

DRUGS (4)
  1. FLOMAX [Concomitant]
     Active Substance: TAMSULOSIN HYDROCHLORIDE
  2. MELAXACAM [Concomitant]
  3. LEVAQUIN [Suspect]
     Active Substance: LEVOFLOXACIN
     Indication: DRUG THERAPY
     Dosage: ?          QUANTITY:1 IV INFUSION;OTHER FREQUENCY:ONE TIME;?
     Route: 042
     Dates: start: 20180105, end: 20180105
  4. SEDATIVE [Concomitant]
     Active Substance: UNSPECIFIED INGREDIENT

REACTIONS (5)
  - Circulatory collapse [None]
  - Pain [None]
  - Muscle spasms [None]
  - Tremor [None]
  - Renal failure [None]

NARRATIVE: CASE EVENT DATE: 20180105
